FAERS Safety Report 24360619 (Version 1)
Quarter: 2024Q3

REPORT INFORMATION
  Report Type: Report from Study
  Country: BR (occurrence: BR)
  Receive Date: 20240925
  Receipt Date: 20240925
  Transmission Date: 20241016
  Serious: Yes (Other)
  Sender: JOHNSON AND JOHNSON
  Company Number: BR-JNJFOC-20240742496

PATIENT
  Age: 48 Year
  Sex: Female

DRUGS (2)
  1. INFLIXIMAB [Suspect]
     Active Substance: INFLIXIMAB
     Indication: Rheumatoid arthritis
     Route: 041
     Dates: start: 20240702
  2. INFLIXIMAB [Suspect]
     Active Substance: INFLIXIMAB
     Indication: Rheumatoid arthritis
     Dosage: THE FIRST INFUSION WAS PERFORMED 02-JUL-2024, THE SECOND ON 17-JUL-2024 AND THE NEXT ON 20-SEP-2024
     Route: 041
     Dates: start: 20240702

REACTIONS (5)
  - Cataract [Unknown]
  - Pain [Not Recovered/Not Resolved]
  - Herpes zoster [Recovering/Resolving]
  - Nasopharyngitis [Unknown]
  - Decreased immune responsiveness [Unknown]

NARRATIVE: CASE EVENT DATE: 20240719
